FAERS Safety Report 16782743 (Version 1)
Quarter: 2019Q3

REPORT INFORMATION
  Report Type: Spontaneous
  Country: HR (occurrence: HR)
  Receive Date: 20190906
  Receipt Date: 20190906
  Transmission Date: 20191005
  Serious: Yes (Other)
  Sender: FDA-Public Use
  Company Number: HR-TEVA-2019-HR-1101768

PATIENT
  Age: 33 Year
  Sex: Male

DRUGS (4)
  1. OLANZAPINE. [Suspect]
     Active Substance: OLANZAPINE
     Dosage: 45 MG
     Route: 048
     Dates: start: 20190525, end: 20190525
  2. VENLAFAXINE [Suspect]
     Active Substance: VENLAFAXINE HYDROCHLORIDE
     Dosage: 1425 MG
     Route: 048
     Dates: start: 20190525, end: 20190525
  3. DORMICUM (NITRAZEPAM) [Suspect]
     Active Substance: NITRAZEPAM
     Dosage: 195 MG
     Route: 048
     Dates: start: 20190525, end: 20190525
  4. CALIXTA [Suspect]
     Active Substance: MIRTAZAPINE
     Dosage: 180 MG
     Route: 048
     Dates: start: 20190525, end: 20190525

REACTIONS (4)
  - Intentional overdose [Unknown]
  - Suicide attempt [Unknown]
  - Restlessness [Unknown]
  - Somnolence [Unknown]

NARRATIVE: CASE EVENT DATE: 20190525
